FAERS Safety Report 15017708 (Version 1)
Quarter: 2018Q2

REPORT INFORMATION
  Report Type: Spontaneous
  Country: US (occurrence: US)
  Receive Date: 20180615
  Receipt Date: 20180615
  Transmission Date: 20180711
  Serious: No
  Sender: FDA-Public Use
  Company Number: US-STRONGBRIDGE BIOPHARMA-2018-STR-000178

PATIENT
  Age: 63 Year
  Sex: Female

DRUGS (1)
  1. KEVEYIS [Suspect]
     Active Substance: DICHLORPHENAMIDE
     Indication: PRODUCT USED FOR UNKNOWN INDICATION
     Dosage: UNK
     Route: 048
     Dates: start: 20180501

REACTIONS (5)
  - Bradycardia [Unknown]
  - Blood pressure decreased [Unknown]
  - Lethargy [Unknown]
  - Disease recurrence [Unknown]
  - Fatigue [Unknown]

NARRATIVE: CASE EVENT DATE: 20180528
